FAERS Safety Report 5649064-8 (Version None)
Quarter: 2008Q1

REPORT INFORMATION
  Report Type: 
  Country: None (occurrence: None)
  Receive Date: 20080131
  Receipt Date: 20071024
  Transmission Date: 20080703
  Serious: No
  Sender: FDA-Public Use
  Company Number: US200709005048

PATIENT
  Age: 57 Year
  Sex: Female

DRUGS (6)
  1. BYETTA [Suspect]
     Indication: TYPE 2 DIABETES MELLITUS
     Dosage: 5 UG, 2/D; 10 UG, 2/D, SUBCUTANEOUS; 20 UG, OTHER, SUBCUTANEOUS
     Route: 058
     Dates: start: 20070701, end: 20070801
  2. BYETTA [Suspect]
     Indication: TYPE 2 DIABETES MELLITUS
     Dosage: 5 UG, 2/D; 10 UG, 2/D, SUBCUTANEOUS; 20 UG, OTHER, SUBCUTANEOUS
     Route: 058
     Dates: start: 20070921, end: 20070921
  3. BYETTA [Suspect]
     Indication: TYPE 2 DIABETES MELLITUS
     Dosage: 5 UG, 2/D; 10 UG, 2/D, SUBCUTANEOUS; 20 UG, OTHER, SUBCUTANEOUS
     Route: 058
     Dates: start: 20070801
  4. EXENATIDE [Concomitant]
  5. GLUCOPHAE (METFORMIN HYDROCHLORIDE) [Concomitant]
  6. GLUCOTROL [Concomitant]

REACTIONS (5)
  - DECREASED APPETITE [None]
  - GASTROOESOPHAGEAL REFLUX DISEASE [None]
  - HEADACHE [None]
  - INCORRECT DOSE ADMINISTERED [None]
  - NAUSEA [None]
